FAERS Safety Report 18447069 (Version 1)
Quarter: 2020Q4

REPORT INFORMATION
  Report Type: Spontaneous
  Country: US (occurrence: US)
  Receive Date: 20201030
  Receipt Date: 20201030
  Transmission Date: 20210114
  Serious: Yes (Other)
  Sender: FDA-Public Use
  Company Number: None

PATIENT
  Age: 63 Year
  Sex: Female
  Weight: 90.72 kg

DRUGS (3)
  1. ALENDRONATE SODIUM 70MG [Suspect]
     Active Substance: ALENDRONATE SODIUM
     Indication: OSTEOPOROSIS
     Route: 048
     Dates: start: 20190522, end: 20190902
  2. ALENDRONATE SODIUM. [Concomitant]
     Active Substance: ALENDRONATE SODIUM
  3. ALENDRONATE SODIUM 70MG [Suspect]
     Active Substance: ALENDRONATE SODIUM
     Indication: OSTEOPOROSIS
     Route: 048
     Dates: start: 2019, end: 20190902

REACTIONS (11)
  - Product substitution issue [None]
  - Peripheral swelling [None]
  - Skin warm [None]
  - Musculoskeletal pain [None]
  - Eye pain [None]
  - Muscle spasms [None]
  - Stevens-Johnson syndrome [None]
  - Skin discolouration [None]
  - Mobility decreased [None]
  - Pain [None]
  - Arthralgia [None]

NARRATIVE: CASE EVENT DATE: 20190522
